FAERS Safety Report 7253603-3 (Version None)
Quarter: 2011Q1

REPORT INFORMATION
  Report Type: 
  Country: None (occurrence: None)
  Receive Date: 20110129
  Receipt Date: 20100310
  Transmission Date: 20110831
  Serious: Yes (Hospitalization)
  Sender: FDA-Public Use
  Company Number: US-ABBOTT-10P-163-0631215-00

PATIENT
  Sex: Female
  Weight: 63.56 kg

DRUGS (6)
  1. HUMIRA [Suspect]
     Indication: RHEUMATOID ARTHRITIS
     Dates: start: 20100308
  2. PRILOSEC [Concomitant]
     Indication: PROPHYLAXIS
  3. PRILOSEC [Concomitant]
     Indication: GASTRIC DISORDER
  4. PREDNISONE [Concomitant]
     Indication: RHEUMATOID ARTHRITIS
  5. HUMIRA [Suspect]
     Indication: RHEUMATOID ARTHRITIS
     Route: 058
     Dates: start: 20030101, end: 20030101
  6. MULTIPLE VITAMINS [Concomitant]
     Indication: VITAMIN SUPPLEMENTATION

REACTIONS (4)
  - EYE INFECTION [None]
  - ARTHRITIS [None]
  - INJECTION SITE PAIN [None]
  - INFLAMMATION OF LACRIMAL PASSAGE [None]
